FAERS Safety Report 8017185-0 (Version None)
Quarter: 2012Q1

REPORT INFORMATION
  Report Type: 
  Country: None (occurrence: None)
  Receive Date: 20120102
  Receipt Date: 20111221
  Transmission Date: 20120608
  Serious: Yes (Hospitalization, Other)
  Sender: FDA-Public Use
  Company Number: PHHY2011FR113505

PATIENT
  Sex: Female

DRUGS (5)
  1. FLUOROURACIL [Suspect]
     Indication: BREAST CANCER
     Dosage: UNK
     Route: 042
     Dates: start: 20110405, end: 20110607
  2. EPIRUBICIN [Suspect]
     Indication: BREAST CANCER
     Dosage: UNK
     Route: 042
     Dates: start: 20110405, end: 20110607
  3. CYCLOPHOSPHAMIDE [Suspect]
     Indication: BREAST CANCER
     Dosage: UNK
     Route: 042
     Dates: start: 20110405, end: 20110607
  4. PACLITAXEL [Suspect]
     Dosage: UNK
     Dates: start: 20110719, end: 20110913
  5. DOCETAXEL [Suspect]
     Dosage: UNK
     Dates: start: 20110628, end: 20110628

REACTIONS (4)
  - CARDIOMYOPATHY [None]
  - PAIN [None]
  - DYSPNOEA [None]
  - SUPRAVENTRICULAR TACHYCARDIA [None]
